FAERS Safety Report 6662880-9 (Version None)
Quarter: 2010Q2

REPORT INFORMATION
  Report Type: 
  Country: None (occurrence: None)
  Receive Date: 20100401
  Receipt Date: 20100319
  Transmission Date: 20101027
  Serious: Yes (Hospitalization)
  Sender: FDA-Public Use
  Company Number: US-JNJFOC-20100306954

PATIENT
  Sex: Male
  Weight: 89.81 kg

DRUGS (12)
  1. ULTRAM [Suspect]
     Indication: DRUG USE FOR UNKNOWN INDICATION
     Route: 065
  2. ULORIC [Suspect]
     Indication: GOUT
     Route: 048
  3. ULORIC [Suspect]
     Route: 048
  4. CLONIDINE [Concomitant]
     Route: 065
  5. TOPROL-XL [Concomitant]
     Route: 065
  6. ALLOPURINOL [Concomitant]
     Indication: GOUT
     Route: 065
  7. HYDROCODONE [Concomitant]
     Route: 065
  8. LANTUS [Concomitant]
     Route: 065
  9. FUROSEMIDE [Concomitant]
     Route: 065
  10. GABAPENTIN [Concomitant]
     Route: 065
  11. OMEPRAZOLE [Concomitant]
     Route: 065
  12. ATACAND [Concomitant]
     Route: 065

REACTIONS (2)
  - ACUTE HEPATIC FAILURE [None]
  - CONFUSIONAL STATE [None]
